FAERS Safety Report 7355902-3 (Version None)
Quarter: 2011Q1

REPORT INFORMATION
  Report Type: 
  Country: None (occurrence: None)
  Receive Date: 20110316
  Receipt Date: 20110311
  Transmission Date: 20110831
  Serious: Yes (Other)
  Sender: FDA-Public Use
  Company Number: US-PFIZER INC-2011054677

PATIENT
  Age: 70 Year
  Sex: Female

DRUGS (1)
  1. PREMARIN [Suspect]
     Indication: BLOOD OESTROGEN DECREASED
     Dosage: UNK, DAILY
     Route: 067
     Dates: start: 20040101

REACTIONS (3)
  - CHONDROPATHY [None]
  - TOOTH DISORDER [None]
  - ARTHRALGIA [None]
